FAERS Safety Report 14194243 (Version 1)
Quarter: 2017Q4

REPORT INFORMATION
  Report Type: Spontaneous
  Country: US (occurrence: None)
  Receive Date: 20171115
  Receipt Date: 20171115
  Transmission Date: 20180321
  Serious: No
  Sender: FDA-Public Use
  Company Number: None

PATIENT
  Age: 63 Year
  Sex: Male

DRUGS (1)
  1. CAPECITABINE 500 MG WESTWARD [Suspect]
     Active Substance: CAPECITABINE
     Indication: RHEUMATOID ARTHRITIS
     Dosage: TAKE 5 TABS  BID X 14 DAYS EVERY 21 DAYS PO
     Route: 048
     Dates: start: 20170913

REACTIONS (2)
  - Lip pain [None]
  - Pain in extremity [None]

NARRATIVE: CASE EVENT DATE: 20170913
